FAERS Safety Report 4446462-5 (Version None)
Quarter: 2004Q3

REPORT INFORMATION
  Report Type: 
  Country: None (occurrence: None)
  Receive Date: 20040907
  Receipt Date: 20040820
  Transmission Date: 20050211
  Serious: Yes (Other)
  Sender: FDA-Public Use
  Company Number: 200712

PATIENT
  Age: 48 Year
  Sex: Female
  Weight: 75.7507 kg

DRUGS (7)
  1. AVONEX [Suspect]
     Indication: MULTIPLE SCLEROSIS
     Dosage: 30 MCG QW IM
     Route: 030
     Dates: start: 20000101
  2. AVONEX [Suspect]
     Indication: MULTIPLE SCLEROSIS
     Dosage: 30 MCG QW IM
     Route: 030
  3. AVONEX [Suspect]
     Indication: MULTIPLE SCLEROSIS
     Dosage: 30 MCG QW IM
     Route: 030
  4. ZOCOR [Concomitant]
  5. PROVIGIL [Concomitant]
  6. CYCLOBENZAPRINE HCL [Concomitant]
  7. DESIPRAMINE HCL [Concomitant]

REACTIONS (1)
  - BASAL CELL CARCINOMA [None]
